FAERS Safety Report 9259176 (Version 2)
Quarter: 2013Q3

REPORT INFORMATION
  Report Type: Report from Study
  Country: ES (occurrence: DE)
  Receive Date: 20130426
  Receipt Date: 20130916
  Transmission Date: 20140515
  Serious: Yes (Other)
  Sender: FDA-Public Use
  Company Number: DE-FRI-1000044752

PATIENT
  Age: 68 Year
  Sex: Female

DRUGS (1)
  1. ACLIDINIUM [Suspect]
     Indication: CHRONIC OBSTRUCTIVE PULMONARY DISEASE
     Dosage: 322 MCG

REACTIONS (1)
  - Bronchospasm paradoxical [Unknown]
